FAERS Safety Report 18037207 (Version 1)
Quarter: 2020Q3

REPORT INFORMATION
  Report Type: Report from Study
  Country: None (occurrence: US)
  Receive Date: 20200717
  Receipt Date: 20200717
  Transmission Date: 20201103
  Serious: Yes (Other)
  Sender: FDA-Public Use
  Company Number: US-ABBVIE-20K-163-3410871-00

PATIENT
  Sex: Male

DRUGS (1)
  1. HUMIRA [Suspect]
     Active Substance: ADALIMUMAB
     Indication: COLITIS ULCERATIVE
     Route: 058

REACTIONS (14)
  - Skeletal injury [Not Recovered/Not Resolved]
  - Rotator cuff syndrome [Unknown]
  - Colitis ulcerative [Recovered/Resolved]
  - Colitis ulcerative [Recovered/Resolved]
  - Joint injury [Unknown]
  - Fatigue [Unknown]
  - Hyperhidrosis [Unknown]
  - Raynaud^s phenomenon [Not Recovered/Not Resolved]
  - Pain [Unknown]
  - Arthritis [Not Recovered/Not Resolved]
  - Anaemia [Not Recovered/Not Resolved]
  - Red blood cell abnormality [Not Recovered/Not Resolved]
  - Dizziness [Unknown]
  - Nausea [Unknown]

NARRATIVE: CASE EVENT DATE: 2000
